FAERS Safety Report 22102359 (Version 2)
Quarter: 2023Q2

REPORT INFORMATION
  Report Type: Spontaneous
  Country: US (occurrence: US)
  Receive Date: 20230316
  Receipt Date: 20230411
  Transmission Date: 20230721
  Serious: Yes (Other)
  Sender: FDA-Public Use
  Company Number: US-PFIZER INC-202300107836

PATIENT
  Age: 13 Year
  Sex: Male

DRUGS (1)
  1. GENOTROPIN [Suspect]
     Active Substance: SOMATROPIN
     Dosage: 2 MG (6 DAYS A WEEK VIA SUBCUTANEOUS INJECTION)
     Route: 058
     Dates: start: 20230310

REACTIONS (3)
  - Hyperhidrosis [Recovered/Resolved]
  - Tinnitus [Recovered/Resolved]
  - Dizziness [Recovered/Resolved]

NARRATIVE: CASE EVENT DATE: 20230310
